FAERS Safety Report 8519572-0 (Version None)
Quarter: 2012Q3

REPORT INFORMATION
  Report Type: 
  Country: None (occurrence: None)
  Receive Date: 20120718
  Receipt Date: 20120713
  Transmission Date: 20120928
  Serious: Yes (Hospitalization, Other)
  Sender: FDA-Public Use
  Company Number: US-BAYER-2012-070550

PATIENT
  Sex: Female

DRUGS (2)
  1. MIRENA [Suspect]
     Dosage: 20 MCG/24HR, CONT
     Route: 015
     Dates: start: 20090101, end: 20120517
  2. MIRENA [Suspect]
     Dosage: 20 MCG/24HR, CONT
     Route: 015
     Dates: start: 20120702

REACTIONS (11)
  - RENAL TRANSPLANT [None]
  - DEVICE EXPULSION [None]
  - ABDOMINAL PAIN [None]
  - SWELLING [None]
  - URINARY TRACT INFECTION [None]
  - POLYMENORRHOEA [None]
  - ABDOMINAL DISTENSION [None]
  - FATIGUE [None]
  - MOOD ALTERED [None]
  - NAUSEA [None]
  - PYREXIA [None]
